FAERS Safety Report 15472938 (Version 3)
Quarter: 2019Q2

REPORT INFORMATION
  Report Type: Spontaneous
  Country: US (occurrence: US)
  Receive Date: 20181008
  Receipt Date: 20190625
  Transmission Date: 20190711
  Serious: Yes (Other)
  Sender: FDA-Public Use
  Company Number: US-PFIZER INC-2018401897

PATIENT
  Age: 77 Year
  Sex: Male
  Weight: 79.38 kg

DRUGS (1)
  1. REVATIO [Suspect]
     Active Substance: SILDENAFIL CITRATE
     Indication: CARDIAC DISORDER
     Dosage: 40 MG, 3X/DAY [20MG TABLETS-2 TABLETS TAKEN 3 TIMES DAILY]
     Route: 048
     Dates: start: 2016

REACTIONS (2)
  - Deafness [Unknown]
  - Prescribed overdose [Unknown]
